FAERS Safety Report 5886029-5 (Version None)
Quarter: 2008Q3

REPORT INFORMATION
  Report Type: 
  Country: None (occurrence: None)
  Receive Date: 20080917
  Receipt Date: 20080912
  Transmission Date: 20090109
  Serious: Yes (Death, Other)
  Sender: FDA-Public Use
  Company Number: JP-NOVOPROD-279397

PATIENT
  Age: 82 Year
  Sex: Male
  Weight: 55 kg

DRUGS (1)
  1. NOVOSEVEN [Suspect]
     Indication: ACQUIRED HAEMOPHILIA
     Dosage: 14.4 MG, QD
     Route: 042
     Dates: start: 20080823, end: 20080826

REACTIONS (3)
  - DEATH [None]
  - PULMONARY EMBOLISM [None]
  - RESPIRATORY TRACT INFECTION [None]
